FAERS Safety Report 7043939-3 (Version None)
Quarter: 2010Q4

REPORT INFORMATION
  Report Type: 
  Country: None (occurrence: None)
  Receive Date: 20101008
  Receipt Date: 20101008
  Transmission Date: 20110411
  Serious: Yes (Life-Threatening, Hospitalization)
  Sender: FDA-Public Use
  Company Number: None

PATIENT
  Age: 64 Year
  Sex: Female
  Weight: 108.8633 kg

DRUGS (1)
  1. LIPITOR [Suspect]
     Indication: BLOOD CHOLESTEROL INCREASED
     Dosage: 20MG. ONCE A DAY PO
     Route: 048
     Dates: start: 20040301, end: 20060710

REACTIONS (4)
  - ABASIA [None]
  - CARDIAC FAILURE [None]
  - RENAL FAILURE [None]
  - RHABDOMYOLYSIS [None]
